FAERS Safety Report 8935395 (Version 1)
Quarter: 2012Q4

REPORT INFORMATION
  Report Type: Spontaneous
  Country: GB (occurrence: None)
  Receive Date: 20121119
  Receipt Date: 20121119
  Transmission Date: 20130627
  Serious: Yes (Death)
  Sender: FDA-Public Use
  Company Number: 2012-19440

PATIENT
  Age: 100 Year
  Sex: Female

DRUGS (6)
  1. FENTANYL [Suspect]
     Indication: PAIN
     Route: 062
     Dates: start: 20121016, end: 20121018
  2. TRIMETHOPRIM [Concomitant]
  3. AMOXICILLIN\CLAVULANATE POTASSIUM [Concomitant]
  4. PARACETAMOL [Concomitant]
  5. IBUPROFEN [Concomitant]
  6. CO-AMILOFRUSE (AMILORIDE HYDROCHLORIDE, FUROSEMIDE) [Concomitant]

REACTIONS (2)
  - Allodynia [None]
  - Death [None]
